FAERS Safety Report 6637097-4 (Version None)
Quarter: 2010Q1

REPORT INFORMATION
  Report Type: 
  Country: None (occurrence: None)
  Receive Date: 20100316
  Receipt Date: 20100304
  Transmission Date: 20100710
  Serious: Yes (Other)
  Sender: FDA-Public Use
  Company Number: US-TYCO HEALTHCARE/MALLINCKRODT-T201000745

PATIENT
  Age: 3 Week
  Sex: Male

DRUGS (2)
  1. OPTIRAY 350 [Suspect]
     Indication: CATHETERISATION CARDIAC
     Route: 042
  2. ANTIBIOTICS [Concomitant]
     Dosage: UNK

REACTIONS (1)
  - DERMATITIS EXFOLIATIVE [None]
